FAERS Safety Report 8620983-3 (Version None)
Quarter: 2012Q3

REPORT INFORMATION
  Report Type: 
  Country: None (occurrence: None)
  Receive Date: 20120824
  Receipt Date: 20110812
  Transmission Date: 20120928
  Serious: Yes (Hospitalization)
  Sender: FDA-Public Use
  Company Number: AR-ELI_LILLY_AND_COMPANY-AR201107002632

PATIENT
  Sex: Female
  Weight: 83.5 kg

DRUGS (9)
  1. DULAGLUTIDE [Suspect]
     Indication: TYPE 2 DIABETES MELLITUS
     Dosage: UNK, WEEKLY (1/W)
     Route: 058
     Dates: start: 20110623, end: 20110628
  2. LEVOTHYROXINE SODIUM [Concomitant]
     Indication: HYPOTHYROIDISM
     Dosage: 50 MG, QD
     Dates: start: 19980101
  3. METFORMIN HCL [Concomitant]
     Indication: DIABETES MELLITUS
     Dosage: 850 MG, BID
     Dates: start: 19960101
  4. RANITIDINE [Concomitant]
     Indication: HYPERCHLORHYDRIA
     Dosage: 150 MG, BID
     Dates: start: 19960101
  5. TOFRANIL [Concomitant]
     Indication: DEPRESSION
     Dosage: 150 MG, EACH EVENING
     Dates: start: 20090101
  6. HUMALOG [Suspect]
     Dosage: 6 IU, TID
     Dates: start: 20110623, end: 20110629
  7. ENALAPRIL MALEATE [Concomitant]
     Indication: HYPERTENSION
     Dosage: 5 MG, QD
     Dates: start: 20110101
  8. HUMALOG [Suspect]
     Dosage: 7 IU, TID
     Dates: start: 20110601, end: 20110629
  9. CLONAZEPAM [Concomitant]
     Indication: ANXIETY
     Dosage: UNK, OTHER
     Dates: start: 20090101

REACTIONS (1)
  - DIABETIC KETOACIDOSIS [None]
